FAERS Safety Report 4398997-1 (Version None)
Quarter: 2004Q3

REPORT INFORMATION
  Report Type: 
  Country: None (occurrence: None)
  Receive Date: 20040712
  Receipt Date: 20040621
  Transmission Date: 20050211
  Serious: Yes (Hospitalization, Other)
  Sender: FDA-Public Use
  Company Number: USA040670589

PATIENT
  Sex: Male

DRUGS (1)
  1. HUMULIN-HUMAN INSULIN(RDNA):30% REGULAR, 70% NPH(H [Suspect]

REACTIONS (8)
  - BACK DISORDER [None]
  - BLOOD GLUCOSE DECREASED [None]
  - BLOOD GLUCOSE INCREASED [None]
  - HYPOACUSIS [None]
  - INTERVERTEBRAL DISC PROTRUSION [None]
  - PHARMACEUTICAL PRODUCT COMPLAINT [None]
  - RENAL TRANSPLANT [None]
  - VISUAL ACUITY REDUCED [None]
